FAERS Safety Report 5487679-0 (Version None)
Quarter: 2007Q4

REPORT INFORMATION
  Report Type: 
  Country: None (occurrence: None)
  Receive Date: 20071017
  Receipt Date: 20071009
  Transmission Date: 20080405
  Serious: Yes (Other)
  Sender: FDA-Public Use
  Company Number: PHBS2007NL16831

PATIENT
  Age: 56 Year
  Sex: Female

DRUGS (1)
  1. DIOVAN HCT [Suspect]
     Dosage: VALS 80 / HCT 12.5 MG/DAY

REACTIONS (7)
  - BACK PAIN [None]
  - BLOOD PRESSURE DECREASED [None]
  - CHEST DISCOMFORT [None]
  - DIZZINESS [None]
  - HEART RATE IRREGULAR [None]
  - MYALGIA [None]
  - SYNCOPE VASOVAGAL [None]
